FAERS Safety Report 15922088 (Version 1)
Quarter: 2019Q1

REPORT INFORMATION
  Report Type: Report from Study
  Country: IT (occurrence: IT)
  Receive Date: 20190206
  Receipt Date: 20190206
  Transmission Date: 20190417
  Serious: Yes (Hospitalization)
  Sender: FDA-Public Use
  Company Number: IT-BIOGEN-2019BI00689990

PATIENT
  Age: 52 Year
  Sex: Male

DRUGS (2)
  1. CARDIOASPIRIN [Concomitant]
     Active Substance: ASPIRIN
     Indication: BEDRIDDEN
     Route: 065
  2. TECFIDERA [Suspect]
     Active Substance: DIMETHYL FUMARATE
     Indication: MULTIPLE SCLEROSIS
     Route: 048
     Dates: start: 20170101, end: 20190115

REACTIONS (4)
  - Dermatitis bullous [Unknown]
  - Pneumonia [Unknown]
  - Herpes zoster [Unknown]
  - Rash erythematous [Unknown]

NARRATIVE: CASE EVENT DATE: 201701
